FAERS Safety Report 10367905 (Version 2)
Quarter: 2014Q3

REPORT INFORMATION
  Report Type: Spontaneous
  Country: GB (occurrence: None)
  Receive Date: 20140805
  Receipt Date: 20140826
  Transmission Date: 20150326
  Serious: Yes (Other)
  Sender: FDA-Public Use
  Company Number: INC-14-000200

PATIENT
  Age: 75 Year
  Sex: Female
  Weight: 52.5 kg

DRUGS (15)
  1. BISOPROLOL [Concomitant]
     Active Substance: BISOPROLOL
  2. CIPROFLOXACIN. [Concomitant]
     Active Substance: CIPROFLOXACIN
  3. DIAZEPAM. [Concomitant]
     Active Substance: DIAZEPAM
  4. DIPYRIDAMOLE. [Concomitant]
     Active Substance: DIPYRIDAMOLE
  5. LACTULOSE. [Concomitant]
     Active Substance: LACTULOSE
  6. PRAVASTATIN [Concomitant]
     Active Substance: PRAVASTATIN\PRAVASTATIN SODIUM
  7. SALBUTAMOL [Concomitant]
     Active Substance: ALBUTEROL
  8. ASPRIN (ACETYLSALICYLIC ACID) [Concomitant]
  9. TRIMETHOPRIM. [Concomitant]
     Active Substance: TRIMETHOPRIM
  10. QVAR (BECLOMETASONE DIPROPIONATE) [Concomitant]
  11. SIMVASTATIN. [Concomitant]
     Active Substance: SIMVASTATIN
  12. FLECAINIDE ACETATE. [Concomitant]
     Active Substance: FLECAINIDE ACETATE
  13. OFTAQUIX [Suspect]
     Active Substance: LEVOFLOXACIN
     Dates: end: 20140714
  14. DOXYCYCLINE. [Concomitant]
     Active Substance: DOXYCYCLINE
  15. ADCAL (CARBAZOCHROME) [Concomitant]

REACTIONS (1)
  - Tendonitis [None]

NARRATIVE: CASE EVENT DATE: 20140714
